FAERS Safety Report 6382291-3 (Version None)
Quarter: 2009Q3

REPORT INFORMATION
  Report Type: 
  Country: None (occurrence: None)
  Receive Date: 20090930
  Receipt Date: 20090922
  Transmission Date: 20100115
  Serious: Yes (Hospitalization)
  Sender: FDA-Public Use
  Company Number: US-BAYER-200914657BCC

PATIENT
  Age: 24 Year
  Sex: Male
  Weight: 68 kg

DRUGS (2)
  1. ASPIRIN [Suspect]
     Indication: DRUG USE FOR UNKNOWN INDICATION
     Dosage: TOOK 12 - 15 TABLETS
     Route: 048
     Dates: start: 20090921
  2. AMOXICILLIN [Concomitant]
     Indication: EAR PAIN

REACTIONS (2)
  - CHEST DISCOMFORT [None]
  - HYPERHIDROSIS [None]
